FAERS Safety Report 7150237-6 (Version None)
Quarter: 2010Q4

REPORT INFORMATION
  Report Type: 
  Country: None (occurrence: None)
  Receive Date: 20101123
  Receipt Date: 20100908
  Transmission Date: 20110411
  Serious: No
  Sender: FDA-Public Use
  Company Number: 018371

PATIENT
  Sex: Female
  Weight: 82 kg

DRUGS (6)
  1. CIMZIA [Suspect]
     Indication: CROHN'S DISEASE
     Dosage: 400 MG 1X/MONTH SUBCUTANEOUS
     Route: 058
     Dates: start: 20100318
  2. PANCREATIC ENZYMES [Concomitant]
  3. THYROID [Concomitant]
  4. SINGULAIR [Concomitant]
  5. ADVAIR [Concomitant]
  6. PREVACID [Concomitant]

REACTIONS (2)
  - HYPERSENSITIVITY [None]
  - INFLUENZA LIKE ILLNESS [None]
